FAERS Safety Report 10812271 (Version 3)
Quarter: 2015Q2

REPORT INFORMATION
  Report Type: Spontaneous
  Country: US (occurrence: US)
  Receive Date: 20150218
  Receipt Date: 20150511
  Transmission Date: 20150821
  Serious: Yes (Other)
  Sender: FDA-Public Use
  Company Number: US-AMGEN-USASP2015014045

PATIENT
  Age: 52 Year
  Sex: Female

DRUGS (1)
  1. ENBREL [Suspect]
     Active Substance: ETANERCEPT
     Indication: RHEUMATOID ARTHRITIS
     Dosage: 25 MG, QWK
     Route: 065
     Dates: start: 20020213

REACTIONS (7)
  - Muscle rupture [Recovered/Resolved]
  - Asthenia [Recovered/Resolved]
  - Arthritis [Unknown]
  - Impaired work ability [Unknown]
  - Rotator cuff syndrome [Not Recovered/Not Resolved]
  - Mobility decreased [Recovered/Resolved]
  - Joint dislocation [Recovered/Resolved]
